FAERS Safety Report 16601369 (Version 1)
Quarter: 2019Q3

REPORT INFORMATION
  Report Type: Spontaneous
  Country: DE (occurrence: DE)
  Receive Date: 20190719
  Receipt Date: 20190719
  Transmission Date: 20191004
  Serious: Yes (Hospitalization)
  Sender: FDA-Public Use
  Company Number: PHHY2019DE164279

PATIENT
  Age: 38 Year
  Sex: Female
  Weight: 100 kg

DRUGS (3)
  1. RED BLOOD CELLS [Concomitant]
     Active Substance: HUMAN RED BLOOD CELL
     Indication: PRODUCT USED FOR UNKNOWN INDICATION
     Dosage: 550 ML, UNK
     Route: 042
     Dates: start: 20190524, end: 20190524
  2. DOCETAXEL. [Suspect]
     Active Substance: DOCETAXEL
     Indication: BREAST CANCER
     Dosage: 200 MG, CYCLIC (MOST RECENT DOSE OF DOCETAXEL 150 MG PRIOR TO SAE: 13 JUN 2019)
     Route: 042
     Dates: start: 20181203
  3. TRASTUZUMAB. [Suspect]
     Active Substance: TRASTUZUMAB
     Indication: BREAST CANCER
     Dosage: 860 MG, CYCLIC(MOST RECENT DOSE OF TRASTUZUMAB 642 MG PRIOR TO SAE: 13 JUN 2019)
     Route: 042
     Dates: start: 20181203

REACTIONS (1)
  - Asthma [Recovering/Resolving]

NARRATIVE: CASE EVENT DATE: 20190629
